FAERS Safety Report 6091136-0 (Version None)
Quarter: 2009Q1

REPORT INFORMATION
  Report Type: 
  Country: None (occurrence: None)
  Receive Date: 20090225
  Receipt Date: 20090217
  Transmission Date: 20090719
  Serious: Yes (Hospitalization)
  Sender: FDA-Public Use
  Company Number: GB-PFIZER INC-2008081675

PATIENT

DRUGS (2)
  1. FLUCONAZOLE [Suspect]
     Indication: VULVOVAGINAL CANDIDIASIS
     Dosage: 150 MG
     Route: 048
     Dates: start: 20080826, end: 20080826
  2. FEMOSTON ^SOLVAY^ [Concomitant]
     Indication: HORMONE REPLACEMENT THERAPY
     Dates: start: 20080321

REACTIONS (4)
  - MOUTH ULCERATION [None]
  - MUCOSAL ULCERATION [None]
  - STEVENS-JOHNSON SYNDROME [None]
  - VULVOVAGINAL DISCOMFORT [None]
